FAERS Safety Report 5759665-4 (Version None)
Quarter: 2008Q2

REPORT INFORMATION
  Report Type: 
  Country: None (occurrence: None)
  Receive Date: 20080605
  Receipt Date: 20080527
  Transmission Date: 20081010
  Serious: Yes (Death, Hospitalization)
  Sender: FDA-Public Use
  Company Number: CH-ABBOTT-08P-151-0453791-00

PATIENT
  Sex: Male

DRUGS (12)
  1. DEPAKENE [Suspect]
     Indication: DRUG USE FOR UNKNOWN INDICATION
     Route: 048
  2. AMISULPRIDE [Suspect]
     Indication: DRUG USE FOR UNKNOWN INDICATION
     Route: 048
     Dates: start: 20070801, end: 20070903
  3. LEVOMEPROMAZINE [Suspect]
     Indication: DRUG USE FOR UNKNOWN INDICATION
     Route: 048
     Dates: start: 20070903, end: 20070907
  4. LEVOMEPROMAZINE [Suspect]
     Route: 048
  5. OXCARBAZEPINE [Concomitant]
     Indication: DRUG USE FOR UNKNOWN INDICATION
     Route: 048
     Dates: start: 20070601, end: 20070903
  6. OXCARBAZEPINE [Concomitant]
     Route: 048
     Dates: start: 20070904
  7. TIOTROPIUM BROMIDE [Concomitant]
     Indication: ASTHMA
     Route: 055
  8. SERETIDE [Concomitant]
     Indication: ASTHMA
     Route: 055
  9. AMLODIPINE [Concomitant]
     Indication: DRUG USE FOR UNKNOWN INDICATION
     Route: 048
     Dates: start: 20070827, end: 20070830
  10. AMLODIPINE [Concomitant]
     Route: 048
     Dates: start: 20070831
  11. TORSEMIDE [Concomitant]
     Indication: DRUG USE FOR UNKNOWN INDICATION
     Route: 048
     Dates: start: 20070907, end: 20070910
  12. TORSEMIDE [Concomitant]
     Route: 048
     Dates: start: 20070910

REACTIONS (3)
  - AGGRESSION [None]
  - CONVULSION [None]
  - SUDDEN UNEXPLAINED DEATH IN EPILEPSY [None]
